FAERS Safety Report 19162648 (Version 1)
Quarter: 2021Q2

REPORT INFORMATION
  Report Type: Spontaneous
  Country: US (occurrence: US)
  Receive Date: 20210420
  Receipt Date: 20210420
  Transmission Date: 20210717
  Serious: Yes (Hospitalization)
  Sender: FDA-Public Use
  Company Number: US-ABBVIE-21K-163-3866407-00

PATIENT
  Age: 2 Year
  Sex: Female

DRUGS (4)
  1. DEPAKOTE [Suspect]
     Active Substance: DIVALPROEX SODIUM
     Dosage: DOSE DECREASED
     Route: 065
  2. CLONAZEPAM. [Concomitant]
     Active Substance: CLONAZEPAM
     Indication: PRODUCT USED FOR UNKNOWN INDICATION
  3. FINTEPLA [Concomitant]
     Active Substance: FENFLURAMINE
     Indication: PRODUCT USED FOR UNKNOWN INDICATION
  4. DEPAKOTE [Suspect]
     Active Substance: DIVALPROEX SODIUM
     Indication: SEIZURE
     Route: 065
     Dates: start: 2018

REACTIONS (1)
  - Anticonvulsant drug level abnormal [Recovering/Resolving]

NARRATIVE: CASE EVENT DATE: 20201003
